FAERS Safety Report 18077741 (Version 1)
Quarter: 2020Q3

REPORT INFORMATION
  Report Type: Spontaneous
  Country: US (occurrence: US)
  Receive Date: 20200728
  Receipt Date: 20200728
  Transmission Date: 20201103
  Serious: No
  Sender: FDA-Public Use
  Company Number: US-AMGEN-USASP2020117367

PATIENT
  Age: 77 Year
  Sex: Female

DRUGS (1)
  1. PROLIA [Suspect]
     Active Substance: DENOSUMAB
     Indication: OSTEOPOROSIS POSTMENOPAUSAL
     Dosage: 60 MILLIGRAM, Q6MO
     Route: 065
     Dates: start: 2018

REACTIONS (6)
  - Muscle spasms [Unknown]
  - Onychoclasis [Unknown]
  - Intervertebral disc degeneration [Not Recovered/Not Resolved]
  - Scoliosis [Unknown]
  - Spondylitis [Unknown]
  - Sciatica [Unknown]
